FAERS Safety Report 11323574 (Version 1)
Quarter: 2015Q3

REPORT INFORMATION
  Report Type: Spontaneous
  Country: US (occurrence: None)
  Receive Date: 20150729
  Receipt Date: 20150729
  Transmission Date: 20151125
  Serious: Yes (Hospitalization)
  Sender: FDA-Public Use
  Company Number: None

PATIENT
  Age: 58 Year
  Sex: Male

DRUGS (12)
  1. CYCLOSPORINE. [Suspect]
     Active Substance: CYCLOSPORINE
     Indication: IMMUNOSUPPRESSION
     Route: 048
     Dates: start: 20141231, end: 20150301
  2. HYDROMORPHONE [Concomitant]
     Active Substance: HYDROMORPHONE
  3. MYCOPHENOLATE [Concomitant]
     Active Substance: MYCOPHENOLIC ACID
  4. ACYCLOVIR. [Concomitant]
     Active Substance: ACYCLOVIR
  5. MIDODRINE [Concomitant]
     Active Substance: MIDODRINE
  6. PREDNISONE. [Concomitant]
     Active Substance: PREDNISONE
  7. URSODIAL [Concomitant]
  8. LANSOPRAZOLE. [Concomitant]
     Active Substance: LANSOPRAZOLE
  9. METOPROLOL [Concomitant]
     Active Substance: METOPROLOL
  10. SULFAMETHOXAZOLE-TRIMETHOPRIM [Concomitant]
     Active Substance: SULFAMETHOXAZOLE\TRIMETHOPRIM
  11. NYSTATIN. [Concomitant]
     Active Substance: NYSTATIN
  12. ONDANSETRON [Concomitant]
     Active Substance: ONDANSETRON

REACTIONS (4)
  - Unresponsive to stimuli [None]
  - Grimacing [None]
  - Neurotoxicity [None]
  - Mental status changes [None]

NARRATIVE: CASE EVENT DATE: 20150225
